FAERS Safety Report 10460505 (Version 2)
Quarter: 2014Q4

REPORT INFORMATION
  Report Type: Report from Study
  Country: JP (occurrence: JP)
  Receive Date: 20140918
  Receipt Date: 20141223
  Transmission Date: 20150528
  Serious: Yes (Hospitalization)
  Sender: FDA-Public Use
  Company Number: JP-ROCHE-1463016

PATIENT
  Age: 80 Year
  Sex: Female

DRUGS (8)
  1. AMITIZA [Concomitant]
     Active Substance: LUBIPROSTONE
     Route: 048
  2. KAYEXALATE [Concomitant]
     Active Substance: SODIUM POLYSTYRENE SULFONATE
     Route: 048
  3. AZILVA [Concomitant]
     Active Substance: AZILSARTAN KAMEDOXOMIL
     Route: 048
  4. LENDORMIN D [Concomitant]
     Active Substance: BROTIZOLAM
     Route: 048
  5. METHOXY POLYETHYLENE GLYCOL-EPOETIN BETA [Suspect]
     Active Substance: PEGZEREPOETIN ALFA
     Indication: NEPHROGENIC ANAEMIA
     Route: 058
     Dates: start: 20131212
  6. CONIEL [Concomitant]
     Active Substance: BENIDIPINE HYDROCHLORIDE
     Route: 048
  7. NIPOLAZIN [Concomitant]
     Route: 048
  8. MAGLAX [Concomitant]
     Active Substance: MAGNESIUM OXIDE
     Route: 048

REACTIONS (1)
  - Cerebral infarction [Recovering/Resolving]

NARRATIVE: CASE EVENT DATE: 20140530
